FAERS Safety Report 11181121 (Version 1)
Quarter: 2015Q2

REPORT INFORMATION
  Report Type: Spontaneous
  Country: US (occurrence: None)
  Receive Date: 20150610
  Receipt Date: 20150610
  Transmission Date: 20150821
  Serious: Yes (Hospitalization)
  Sender: FDA-Public Use
  Company Number: None

PATIENT
  Age: 58 Year
  Sex: Male
  Weight: 116 kg

DRUGS (8)
  1. ENOXAPARIN [Concomitant]
     Active Substance: ENOXAPARIN
  2. ZOFRAN [Concomitant]
     Active Substance: ONDANSETRON HYDROCHLORIDE
  3. MORPHINE [Concomitant]
     Active Substance: MORPHINE
  4. LEVEMIR [Concomitant]
     Active Substance: INSULIN DETEMIR
  5. ACETAMINOPHEN. [Concomitant]
     Active Substance: ACETAMINOPHEN
  6. NORCO [Concomitant]
     Active Substance: ACETAMINOPHEN\HYDROCODONE BITARTRATE
  7. VANCOMYCIN [Suspect]
     Active Substance: VANCOMYCIN
     Indication: GANGRENE
     Route: 042
     Dates: start: 20150606, end: 20150607
  8. PIPERACILLIN/TAZOBACTAM [Suspect]
     Active Substance: PIPERACILLIN SODIUM\TAZOBACTAM SODIUM
     Indication: GANGRENE
     Route: 042
     Dates: start: 20150606, end: 20150609

REACTIONS (2)
  - Antibiotic level above therapeutic [None]
  - Acute kidney injury [None]

NARRATIVE: CASE EVENT DATE: 20150608
